FAERS Safety Report 11343642 (Version 1)
Quarter: 2015Q3

REPORT INFORMATION
  Report Type: Spontaneous
  Country: PL (occurrence: PL)
  Receive Date: 20150806
  Receipt Date: 20150806
  Transmission Date: 20151125
  Serious: Yes (Other)
  Sender: FDA-Public Use
  Company Number: PL-ROCHE-1616360

PATIENT
  Sex: Female

DRUGS (5)
  1. ENDOXAN [Concomitant]
     Active Substance: CYCLOPHOSPHAMIDE
  2. MYOCET [Concomitant]
     Active Substance: DOXORUBICIN
  3. HERCEPTIN [Suspect]
     Active Substance: TRASTUZUMAB
     Indication: BREAST CANCER
     Route: 058
     Dates: end: 2014
  4. XELODA [Suspect]
     Active Substance: CAPECITABINE
     Indication: PRODUCT USED FOR UNKNOWN INDICATION
     Route: 065
  5. LAPATINIB [Concomitant]
     Active Substance: LAPATINIB

REACTIONS (6)
  - Metastases to liver [Unknown]
  - Metastasis [Unknown]
  - Metastases to lymph nodes [Unknown]
  - Pulmonary oedema [Unknown]
  - Metastases to spine [Unknown]
  - Metastases to lung [Unknown]
